FAERS Safety Report 17847520 (Version 1)
Quarter: 2020Q2

REPORT INFORMATION
  Report Type: Spontaneous
  Country: GB (occurrence: GB)
  Receive Date: 20200601
  Receipt Date: 20200601
  Transmission Date: 20200714
  Serious: Yes (Disabling)
  Sender: FDA-Public Use
  Company Number: GB-009507513-2005GBR009908

PATIENT
  Age: 36 Year
  Sex: Female
  Weight: 60 kg

DRUGS (20)
  1. PREDNISOLONE. [Concomitant]
     Active Substance: PREDNISOLONE
     Indication: ASTHMA
     Dosage: 8 DOSAGE FORM, QD
     Dates: start: 20200408, end: 20200415
  2. MIRTAZAPINE. [Concomitant]
     Active Substance: MIRTAZAPINE
     Dosage: AT NIGHT
     Dates: start: 20190918
  3. RANITIDINE. [Concomitant]
     Active Substance: RANITIDINE
     Dosage: 2 DOSAGE FORM, QD
     Dates: start: 20200220, end: 20200430
  4. OMEPRAZOLE. [Concomitant]
     Active Substance: OMEPRAZOLE
     Dosage: 1 DOSAGE FORM, QD
     Dates: start: 20200331
  5. CODEINE PHOSPHATE [Concomitant]
     Active Substance: CODEINE PHOSPHATE
     Dosage: ONE OR TWO TO BE TAKEN EVERY FOUR HOURS WHEN NE...
     Dates: start: 20190918
  6. MONTELUKAST SODIUM. [Suspect]
     Active Substance: MONTELUKAST SODIUM
     Dosage: 10 MILLIGRAM, QD AT NIGHT
     Dates: start: 20200420, end: 20200518
  7. LACTULOSE. [Concomitant]
     Active Substance: LACTULOSE
     Dosage: 10-15MLS TWICE A DAY AS NEEDED
     Dates: start: 20190918
  8. CIMETIDINE [Concomitant]
     Active Substance: CIMETIDINE
     Dosage: 2 DOSAGE FORM, QD
     Dates: start: 20200430
  9. GABAPENTIN. [Concomitant]
     Active Substance: GABAPENTIN
     Dosage: 3 DOSAGE FORM, QD
     Dates: start: 20191025
  10. SODIUM PICOSULFATE [Concomitant]
     Active Substance: SODIUM PICOSULFATE
     Dosage: 10-15ML ON ALTERNATE NIGHTS
     Dates: start: 20200311
  11. LANSOPRAZOLE. [Concomitant]
     Active Substance: LANSOPRAZOLE
     Dosage: 2 DOSAGE FORM, QD
     Dates: start: 20190918, end: 20200305
  12. ACETAMINOPHEN. [Concomitant]
     Active Substance: ACETAMINOPHEN
     Dosage: 1-2 TABLETS TO BE TAKEN UP TO 4 TIMES DAILY
     Dates: start: 20190918
  13. CLARITHROMYCIN. [Concomitant]
     Active Substance: CLARITHROMYCIN
     Indication: PNEUMONIA
     Dosage: PREFERRED OPTION...
     Dates: start: 20200302, end: 20200309
  14. QVAR [Concomitant]
     Active Substance: BECLOMETHASONE DIPROPIONATE
     Dosage: 2 - 4 PUFFS TWICE A DAY
     Route: 055
     Dates: start: 20200310
  15. POLYETHYLENE GLYCOL [Concomitant]
     Active Substance: POLYETHYLENE GLYCOLS
     Dosage: DISSOLVE CONTENTS OF ONE SACHET IN HALF A GLASS...
     Dates: start: 20190918
  16. NIZATIDINE. [Concomitant]
     Active Substance: NIZATIDINE
     Dosage: 2 DOSAGE FORM, QD
     Dates: start: 20200219, end: 20200305
  17. ESOMEPRAZOLE. [Concomitant]
     Active Substance: ESOMEPRAZOLE MAGNESIUM
     Dosage: TAKE ONE TWICE A DAY FOR 8 WEEKS
     Dates: start: 20200305, end: 20200402
  18. NYSTATIN. [Concomitant]
     Active Substance: NYSTATIN
     Dosage: 4 MILLILITER, QD
     Dates: start: 20200302, end: 20200309
  19. ALBUTEROL. [Concomitant]
     Active Substance: ALBUTEROL
     Indication: DYSPNOEA
     Dosage: OR ...
     Route: 055
     Dates: start: 20200219
  20. ORAMORPH [Concomitant]
     Active Substance: MORPHINE SULFATE
     Indication: PAIN
     Dosage: 2.5 -5MLS AS NEEDED FOR PAIN EVERY 4 HOURS
     Dates: start: 20190918

REACTIONS (2)
  - Vomiting [Recovered/Resolved]
  - Migraine [Recovered/Resolved]

NARRATIVE: CASE EVENT DATE: 20200422
